FAERS Safety Report 6727126-1 (Version None)
Quarter: 2010Q2

REPORT INFORMATION
  Report Type: 
  Country: None (occurrence: None)
  Receive Date: 20100517
  Receipt Date: 20100506
  Transmission Date: 20101027
  Serious: Yes (Hospitalization)
  Sender: FDA-Public Use
  Company Number: HK-BAYER-201024775GPV

PATIENT
  Age: 38 Year
  Sex: Female

DRUGS (2)
  1. BETAFERON [Suspect]
     Indication: MULTIPLE SCLEROSIS
     Route: 058
     Dates: start: 20090619, end: 20100201
  2. BETAFERON [Suspect]
     Route: 058
     Dates: start: 20100301

REACTIONS (1)
  - EYE MOVEMENT DISORDER [None]
